FAERS Safety Report 5076570-X (Version None)
Quarter: 2006Q3

REPORT INFORMATION
  Report Type: 
  Country: None (occurrence: None)
  Receive Date: 20060725
  Receipt Date: 20060328
  Transmission Date: 20061208
  Serious: No
  Sender: FDA-Public Use
  Company Number: 200612000BWH

PATIENT
  Age: 66 Year
  Sex: Female

DRUGS (8)
  1. NEXAVAR [Suspect]
     Indication: RENAL CELL CARCINOMA STAGE IV
     Dosage: 200 MG, BID, ORAL
     Route: 048
     Dates: start: 20060315
  2. METOPROLOL TARTRATE [Concomitant]
  3. NORVASC [Concomitant]
  4. FOSINOPRIL SODIUM [Concomitant]
  5. COLACE [Concomitant]
  6. LASIX [Concomitant]
  7. COUMADIN [Concomitant]
  8. ADVAIR DISKUS 100/50 [Concomitant]

REACTIONS (2)
  - RASH [None]
  - RASH GENERALISED [None]
